FAERS Safety Report 5477385-0 (Version None)
Quarter: 2007Q4

REPORT INFORMATION
  Report Type: 
  Country: None (occurrence: None)
  Receive Date: 20071001
  Receipt Date: 20070925
  Transmission Date: 20080405
  Serious: Yes (Hospitalization)
  Sender: FDA-Public Use
  Company Number: 2006SP006790

PATIENT
  Age: 52 Year
  Sex: Male
  Weight: 65 kg

DRUGS (16)
  1. TEMODAL [Suspect]
     Indication: GLIOBLASTOMA MULTIFORME
     Dosage: 150 MG/M2;QD;PO; 200 MG/M2;QD;PO; 150 MG/M2;QD;PO
     Route: 048
     Dates: start: 20060828, end: 20060914
  2. TEMODAL [Suspect]
     Indication: GLIOBLASTOMA MULTIFORME
     Dosage: 150 MG/M2;QD;PO; 200 MG/M2;QD;PO; 150 MG/M2;QD;PO
     Route: 048
     Dates: start: 20060925, end: 20060929
  3. TEMODAL [Suspect]
     Indication: GLIOBLASTOMA MULTIFORME
     Dosage: 150 MG/M2;QD;PO; 200 MG/M2;QD;PO; 150 MG/M2;QD;PO
     Route: 048
     Dates: start: 20061124, end: 20061128
  4. AMOXAN [Concomitant]
  5. ISALON [Concomitant]
  6. MYSTAN [Concomitant]
  7. DEPAKENE [Concomitant]
  8. PHENYTOIN SODIUM CAP [Concomitant]
  9. MAGNESIUM OXIDE [Concomitant]
  10. GLYCYRON [Concomitant]
  11. KYTRIL [Concomitant]
  12. TANATRIL [Concomitant]
  13. CEFSPAN [Concomitant]
  14. LEVOFLOXACIN [Concomitant]
  15. AZUNOL [Concomitant]
  16. LOXONIN [Concomitant]

REACTIONS (6)
  - BONE MARROW FAILURE [None]
  - C-REACTIVE PROTEIN INCREASED [None]
  - DRUG ERUPTION [None]
  - PLATELET COUNT DECREASED [None]
  - PNEUMONIA BACTERIAL [None]
  - POST PROCEDURAL INFECTION [None]
